FAERS Safety Report 7237220-7 (Version None)
Quarter: 2011Q1

REPORT INFORMATION
  Report Type: 
  Country: None (occurrence: None)
  Receive Date: 20110121
  Receipt Date: 20110118
  Transmission Date: 20110831
  Serious: Yes (Life-Threatening, Hospitalization)
  Sender: FDA-Public Use
  Company Number: FR-ABBOTT-11P-056-0698511-00

PATIENT
  Age: 20 Year
  Sex: Female

DRUGS (4)
  1. ZECLAR [Suspect]
     Indication: NASOPHARYNGITIS
     Route: 048
     Dates: start: 20101101, end: 20101101
  2. SYMBICORT [Concomitant]
     Indication: ASTHMA
  3. VENTOLIN [Concomitant]
     Indication: ASTHMA
  4. JASMINE [Suspect]
     Indication: CONTRACEPTION
     Dosage: 0.3MG/3MG
     Route: 048
     Dates: end: 20101117

REACTIONS (2)
  - CEREBRAL VENOUS THROMBOSIS [None]
  - SUBARACHNOID HAEMORRHAGE [None]
